FAERS Safety Report 5948348-3 (Version None)
Quarter: 2008Q4

REPORT INFORMATION
  Report Type: 
  Country: None (occurrence: None)
  Receive Date: 20081111
  Receipt Date: 20081105
  Transmission Date: 20090506
  Serious: Yes (Hospitalization, Other)
  Sender: FDA-Public Use
  Company Number: NZ-ASTRAZENECA-2008AP08609

PATIENT
  Age: 70 Year
  Sex: Female
  Weight: 69.9 kg

DRUGS (4)
  1. ARIMIDEX [Suspect]
     Indication: OESTROGEN THERAPY
     Route: 048
     Dates: start: 20071004
  2. LISINOPRIL [Concomitant]
     Indication: HYPERTENSION
     Route: 048
  3. FERROGRADUMET [Concomitant]
     Indication: ANAEMIA
     Route: 048
  4. OMEPRAZOLE [Concomitant]
     Indication: DYSPEPSIA
     Route: 048

REACTIONS (3)
  - ANAEMIA [None]
  - GASTRITIS [None]
  - OCCULT BLOOD POSITIVE [None]
